FAERS Safety Report 17508513 (Version 1)
Quarter: 2020Q1

REPORT INFORMATION
  Report Type: Spontaneous
  Country: US (occurrence: US)
  Receive Date: 20200225
  Receipt Date: 20200225
  Transmission Date: 20200409
  Serious: Yes (Disabling, Other)
  Sender: FDA-Public Use
  Company Number: None

PATIENT
  Age: 57 Year
  Sex: Female
  Weight: 67.9 kg

DRUGS (23)
  1. ATEZOLIZUMAB. [Suspect]
     Active Substance: ATEZOLIZUMAB
     Indication: METASTASES TO CENTRAL NERVOUS SYSTEM
     Dosage: ?          OTHER FREQUENCY:Q3WEEKS;?
     Route: 042
     Dates: start: 20191008, end: 20191112
  2. INSULIN GLARGINE [Concomitant]
     Active Substance: INSULIN GLARGINE
  3. IPRATROPIUM-ALBUTEROL [Concomitant]
     Active Substance: ALBUTEROL\IPRATROPIUM
  4. THIAMINE. [Concomitant]
     Active Substance: THIAMINE
  5. DEXAMETHASONE. [Concomitant]
     Active Substance: DEXAMETHASONE
  6. CEFTRIAXONE. [Concomitant]
     Active Substance: CEFTRIAXONE
  7. ONDANSETRON [Concomitant]
     Active Substance: ONDANSETRON
  8. KETOROLAC [Concomitant]
     Active Substance: KETOROLAC TROMETHAMINE
  9. PANTOPRAZOLE [Concomitant]
     Active Substance: PANTOPRAZOLE
  10. ATEZOLIZUMAB. [Suspect]
     Active Substance: ATEZOLIZUMAB
     Indication: BREAST CANCER
     Dosage: ?          OTHER FREQUENCY:Q3WEEKS;?
     Route: 042
     Dates: start: 20191008, end: 20191112
  11. TRASTUZUMAB. [Suspect]
     Active Substance: TRASTUZUMAB
     Indication: BREAST CANCER
     Route: 042
     Dates: start: 20191008, end: 20191112
  12. ENOXAPARIN [Concomitant]
     Active Substance: ENOXAPARIN
  13. LEVETIRACETAM. [Concomitant]
     Active Substance: LEVETIRACETAM
  14. LIP PROTECTANT [Concomitant]
  15. ACETAMINOPHEN. [Concomitant]
     Active Substance: ACETAMINOPHEN
  16. DEXTROSE. [Concomitant]
     Active Substance: DEXTROSE
  17. SODIUM CHLORIDE. [Concomitant]
     Active Substance: SODIUM CHLORIDE
  18. AZITHROMYCIN ANHYDROUS. [Concomitant]
     Active Substance: AZITHROMYCIN ANHYDROUS
  19. TRASTUZUMAB. [Suspect]
     Active Substance: TRASTUZUMAB
     Indication: METASTASES TO CENTRAL NERVOUS SYSTEM
     Route: 042
     Dates: start: 20191008, end: 20191112
  20. LACOSAMIDE. [Concomitant]
     Active Substance: LACOSAMIDE
  21. ACETAMINOPHEN. [Concomitant]
     Active Substance: ACETAMINOPHEN
  22. BUPROPION. [Concomitant]
     Active Substance: BUPROPION
     Dates: start: 20181113
  23. VALPROATE [Concomitant]
     Active Substance: VALPROIC ACID

REACTIONS (3)
  - Seizure [None]
  - Brain cancer metastatic [None]
  - Drug ineffective [None]

NARRATIVE: CASE EVENT DATE: 20191209
